FAERS Safety Report 23470193 (Version 1)
Quarter: 2024Q1

REPORT INFORMATION
  Report Type: Report from Study
  Country: US (occurrence: None)
  Receive Date: 20240202
  Receipt Date: 20240202
  Transmission Date: 20240410
  Serious: Yes (Other)
  Sender: FDA-Public Use
  Company Number: 2024A022443

PATIENT
  Age: 26420 Day
  Sex: Female

DRUGS (1)
  1. FASENRA [Suspect]
     Active Substance: BENRALIZUMAB
     Route: 058

REACTIONS (5)
  - Liver disorder [Unknown]
  - Back pain [Unknown]
  - Movement disorder [Unknown]
  - Cardiac disorder [Unknown]
  - Asthma [Unknown]

NARRATIVE: CASE EVENT DATE: 20240126
